FAERS Safety Report 20771126 (Version 1)
Quarter: 2022Q2

REPORT INFORMATION
  Report Type: Spontaneous
  Country: US (occurrence: US)
  Receive Date: 20220429
  Receipt Date: 20220429
  Transmission Date: 20220721
  Serious: No
  Sender: FDA-Public Use
  Company Number: US-TEVA-2022-US-2024720

PATIENT

DRUGS (1)
  1. WARFARIN SODIUM [Suspect]
     Active Substance: WARFARIN SODIUM
     Indication: Atrial fibrillation
     Dosage: FOR 2 YEARS
     Route: 065
     Dates: start: 2020

REACTIONS (5)
  - Dyspepsia [Not Recovered/Not Resolved]
  - Gallbladder operation [Unknown]
  - Vein disorder [Unknown]
  - Vein collapse [Unknown]
  - Infusion site extravasation [Unknown]
